FAERS Safety Report 17180805 (Version 1)
Quarter: 2019Q4

REPORT INFORMATION
  Report Type: Spontaneous
  Country: JP (occurrence: JP)
  Receive Date: 20191220
  Receipt Date: 20191220
  Transmission Date: 20200122
  Serious: Yes (Other)
  Sender: FDA-Public Use
  Company Number: JP-TEVA-2019-JP-010541J

PATIENT
  Age: 65 Year
  Sex: Female

DRUGS (1)
  1. TAKEPRON OD TABLETS 30 [Suspect]
     Active Substance: LANSOPRAZOLE
     Indication: GASTROOESOPHAGEAL REFLUX DISEASE
     Dosage: DOSAGE IS UNKNOWN
     Route: 048

REACTIONS (2)
  - Colitis microscopic [Unknown]
  - Diarrhoea [Recovering/Resolving]
